FAERS Safety Report 14825201 (Version 2)
Quarter: 2018Q2

REPORT INFORMATION
  Report Type: Spontaneous
  Country: PT (occurrence: PT)
  Receive Date: 20180430
  Receipt Date: 20180504
  Transmission Date: 20180711
  Serious: Yes (Other)
  Sender: FDA-Public Use
  Company Number: PT-TEVA-2018-PT-885185

PATIENT
  Age: 39 Year
  Sex: Female

DRUGS (5)
  1. PYRIDOSTIGMINE [Suspect]
     Active Substance: PYRIDOSTIGMINE
     Dosage: 240 MG
     Route: 065
  2. FLUOXETINE [Suspect]
     Active Substance: FLUOXETINE HYDROCHLORIDE
     Indication: MYASTHENIC SYNDROME
     Dosage: 40 MILLIGRAM DAILY;
     Route: 065
  3. FLUOXETINE [Suspect]
     Active Substance: FLUOXETINE HYDROCHLORIDE
     Indication: MYASTHENIC SYNDROME
     Dosage: REINFORCED WITH THE PHASED DOSE INCREMENTS UNTIL 100 MG DAILY
     Route: 065
  4. PYRIDOSTIGMINE [Suspect]
     Active Substance: PYRIDOSTIGMINE
     Dosage: 180 MILLIGRAM DAILY;
     Route: 065
  5. PYRIDOSTIGMINE [Suspect]
     Active Substance: PYRIDOSTIGMINE
     Dosage: 360 MG
     Route: 065

REACTIONS (5)
  - Irritability [Unknown]
  - Condition aggravated [Recovered/Resolved]
  - Speech disorder [Unknown]
  - Cognitive disorder [Unknown]
  - Myasthenic syndrome [Recovered/Resolved]
